FAERS Safety Report 6387767-0 (Version None)
Quarter: 2009Q4

REPORT INFORMATION
  Report Type: 
  Country: None (occurrence: None)
  Receive Date: 20091005
  Receipt Date: 20090924
  Transmission Date: 20100525
  Serious: Yes (Other)
  Sender: FDA-Public Use
  Company Number: GB-ROCHE-658729

PATIENT
  Age: 17 Year
  Sex: Female

DRUGS (1)
  1. TAMIFLU [Suspect]
     Indication: DRUG USE FOR UNKNOWN INDICATION
     Route: 065
     Dates: start: 20090817

REACTIONS (6)
  - ABNORMAL DREAMS [None]
  - AGGRESSION [None]
  - HALLUCINATION [None]
  - NAUSEA [None]
  - SLEEP DISORDER [None]
  - VOMITING [None]
